FAERS Safety Report 4652453-1 (Version None)
Quarter: 2005Q2

REPORT INFORMATION
  Report Type: 
  Country: None (occurrence: None)
  Receive Date: 20050502
  Receipt Date: 20050421
  Transmission Date: 20051028
  Serious: Yes (Other)
  Sender: FDA-Public Use
  Company Number: 2005-03-1672

PATIENT
  Age: 52 Year
  Sex: Female

DRUGS (4)
  1. CELESTAMINE TAB [Suspect]
     Indication: URTICARIA
     Dosage: 1 TAB ORAL
     Route: 048
     Dates: start: 20050322, end: 20050322
  2. POLARAMINE [Suspect]
     Indication: URTICARIA
     Dosage: 5 MG IM INTRAMUSCULAR
     Route: 030
     Dates: start: 20050322, end: 20050323
  3. HYTHIOL [Concomitant]
  4. STRONGER NEO MINOPHAGEN C [Concomitant]

REACTIONS (4)
  - FEELING ABNORMAL [None]
  - HEART RATE INCREASED [None]
  - LOSS OF CONSCIOUSNESS [None]
  - URINARY INCONTINENCE [None]
